FAERS Safety Report 5887048-5 (Version None)
Quarter: 2008Q3

REPORT INFORMATION
  Report Type: 
  Country: None (occurrence: None)
  Receive Date: 20080915
  Receipt Date: 20080902
  Transmission Date: 20090109
  Serious: Yes (Other)
  Sender: FDA-Public Use
  Company Number: 20173

PATIENT
  Age: 34 Year
  Sex: Female
  Weight: 65.5 kg

DRUGS (9)
  1. DEXAMETHASONE [Suspect]
  2. CYTARABINE [Suspect]
  3. ETOPOSIDE [Suspect]
  4. ACYCLOVIR [Suspect]
  5. POSACONAZOLE [Suspect]
     Indication: HEPATOSPLENIC CANDIDIASIS
     Dosage: 40 MG/ML PO
     Route: 048
     Dates: start: 20071019, end: 20080125
  6. PANTOPRAZOLE SODIUM [Suspect]
  7. METOPIMAZINE [Suspect]
  8. POTASSIUM CHLORIDE [Suspect]
     Dosage: 750 MG  PO
     Route: 048
  9. ALLOPURINOL [Suspect]

REACTIONS (1)
  - SINOATRIAL BLOCK [None]
